FAERS Safety Report 5994530-9 (Version None)
Quarter: 2008Q4

REPORT INFORMATION
  Report Type: 
  Country: None (occurrence: None)
  Receive Date: 20081212
  Receipt Date: 20081205
  Transmission Date: 20090506
  Serious: Yes (Other)
  Sender: FDA-Public Use
  Company Number: JP-MERCK-0812USA02220

PATIENT
  Age: 3 Year
  Sex: Female

DRUGS (9)
  1. SINGULAIR [Suspect]
     Indication: ASTHMA
     Route: 048
     Dates: start: 20081115, end: 20081116
  2. SINGULAIR [Suspect]
     Route: 048
     Dates: start: 20080501
  3. ASVERIN [Concomitant]
     Indication: BRONCHITIS
     Route: 048
     Dates: start: 20081111
  4. ALIMEZINE [Concomitant]
     Indication: COUGH
     Route: 048
     Dates: start: 20081111
  5. MUCODYNE [Concomitant]
     Indication: UPPER RESPIRATORY TRACT INFECTION
     Route: 048
     Dates: start: 20081111
  6. SENECA SNAKEROOT [Concomitant]
     Indication: PRODUCTIVE COUGH
     Route: 048
     Dates: start: 20081111
  7. BROCIN [Concomitant]
     Indication: BRONCHITIS
     Route: 048
     Dates: start: 20081111
  8. CODEINE PHOSPHATE [Concomitant]
     Indication: COUGH
     Route: 048
     Dates: start: 20081111
  9. [THERAPY UNSPECIFIED] [Concomitant]
     Indication: ASTHMA
     Route: 061
     Dates: start: 20081111

REACTIONS (3)
  - ABNORMAL BEHAVIOUR [None]
  - AGITATION [None]
  - DELIRIUM [None]
